FAERS Safety Report 9921925 (Version 1)
Quarter: 2014Q1

REPORT INFORMATION
  Report Type: Spontaneous
  Country: US (occurrence: US)
  Receive Date: 20140225
  Receipt Date: 20140225
  Transmission Date: 20141002
  Serious: Yes (Life-Threatening, Hospitalization, Other)
  Sender: FDA-Public Use
  Company Number: US-ACTAVIS-2014-02868

PATIENT
  Age: 16 Year
  Sex: Female

DRUGS (2)
  1. COLCHICINE (WATSON LABORATORIES) [Suspect]
     Indication: INTENTIONAL DRUG MISUSE
     Dosage: 18 MG, SINGLE(30 TABLETS ,0.6 MG/TABLET)
     Route: 048
  2. ALBUTEROL                          /00139501/ [Concomitant]
     Indication: ASTHMA EXERCISE INDUCED
     Dosage: UNK
     Route: 065

REACTIONS (9)
  - Gastroenteritis [Recovered/Resolved]
  - Liver injury [Recovering/Resolving]
  - Renal injury [Recovering/Resolving]
  - Respiratory distress [Recovered/Resolved]
  - Bone marrow failure [Recovering/Resolving]
  - Alopecia [Unknown]
  - Leukocytosis [Unknown]
  - Intentional drug misuse [Unknown]
  - Intentional overdose [Unknown]
